FAERS Safety Report 5936847-X (Version None)
Quarter: 2008Q4

REPORT INFORMATION
  Report Type: 
  Country: None (occurrence: None)
  Receive Date: 20081029
  Receipt Date: 20081015
  Transmission Date: 20090506
  Serious: Yes (Hospitalization)
  Sender: FDA-Public Use
  Company Number: 2006US000515

PATIENT
  Age: 60 Year
  Sex: Male

DRUGS (26)
  1. PROGRAF(TRCROLIMUS CAPSULES) PROGRAF(TACROLIMUS) CAPSULE [Suspect]
     Indication: PROPHYLAXIS AGAINST TRANSPLANT REJECTION
     Dosage: 5.5 MG, ORAL
     Route: 048
     Dates: start: 20050509
  2. MYCOPHENOLATE MOFETIL [Suspect]
     Indication: PROPHYLAXIS AGAINST TRANSPLANT REJECTION
     Dosage: 750 MG, BID, ORAL
     Route: 048
     Dates: start: 20050509
  3. SOLU-MEDROL [Suspect]
     Indication: PROPHYLAXIS AGAINST TRANSPLANT REJECTION
     Dosage: 120 MG, IV NOS
     Route: 042
     Dates: start: 20050510
  4. THYMOGLOBULIN [Suspect]
     Indication: RENAL TRANSPLANT
     Dosage: 100 MG, IV NOS
     Route: 042
     Dates: start: 20050510
  5. PREDNISOLONE ACETATE [Suspect]
     Indication: RENAL TRANSPLANT
     Dosage: 20 MG, ORAL
     Route: 048
     Dates: start: 20050512
  6. PROTONIX [Concomitant]
  7. NORVASC [Concomitant]
  8. TOPROL-XL [Concomitant]
  9. FLAGYL [Concomitant]
  10. NYSTATIN (NYSTATIN) POWDER [Concomitant]
  11. SODIUM BICARBONATE IN PLASTIC CONTAINER [Concomitant]
  12. DIGOXIN [Concomitant]
  13. LANTUS [Concomitant]
  14. CALCIUM GLUCONATE [Concomitant]
  15. AMBIEN [Concomitant]
  16. HYDRALAZINE HCL [Concomitant]
  17. CARDIZEM [Concomitant]
  18. EPOGEN [Concomitant]
  19. LISINOPRIL [Concomitant]
  20. LANOXIN [Concomitant]
  21. K-PHOS (POTASSIUM PHOSPHATE MONOBASIC) [Concomitant]
  22. DOXAZOSIN (DOXAZOSIN MESLIATE) [Concomitant]
  23. METOPROLOL TARTRATE [Concomitant]
  24. INSULIN, REGULAR (INSULIN) [Concomitant]
  25. CLONIDINE (CLONIDIE) [Concomitant]
  26. HEPARIN [Concomitant]

REACTIONS (4)
  - ATRIAL FIBRILLATION [None]
  - GRAFT DYSFUNCTION [None]
  - PYELONEPHRITIS [None]
  - SEPSIS [None]
